FAERS Safety Report 8190847-0 (Version None)
Quarter: 2012Q1

REPORT INFORMATION
  Report Type: 
  Country: None (occurrence: None)
  Receive Date: 20120307
  Receipt Date: 20120228
  Transmission Date: 20120608
  Serious: Yes (Hospitalization, Other)
  Sender: FDA-Public Use
  Company Number: US-MERCK-1109USA00244

PATIENT
  Age: 69 Year
  Sex: Female

DRUGS (6)
  1. DITROPAN [Concomitant]
     Route: 048
  2. VITAMIN D (UNSPECIFIED) [Concomitant]
     Route: 065
     Dates: start: 20060101
  3. ACIPHEX [Concomitant]
     Route: 065
  4. ALBUTEROL [Concomitant]
     Dosage: PRN
     Route: 065
  5. FOSAMAX [Suspect]
     Indication: OSTEOPOROSIS
     Route: 048
     Dates: start: 20030101
  6. CALCIUM (UNSPECIFIED) [Concomitant]
     Route: 065
     Dates: start: 20060101

REACTIONS (27)
  - FALL [None]
  - COUGH [None]
  - GASTROINTESTINAL DISORDER [None]
  - FACET JOINT SYNDROME [None]
  - FEMUR FRACTURE [None]
  - SPINAL DISORDER [None]
  - BLADDER DISORDER [None]
  - ANAEMIA [None]
  - OSTEOARTHRITIS [None]
  - ARTHROPATHY [None]
  - MENISCUS LESION [None]
  - BACK PAIN [None]
  - HAND FRACTURE [None]
  - BRONCHIOLITIS [None]
  - GASTROOESOPHAGEAL REFLUX DISEASE [None]
  - ARTHRALGIA [None]
  - SPINAL OSTEOARTHRITIS [None]
  - ASTHMA [None]
  - PATELLA FRACTURE [None]
  - SPINAL COMPRESSION FRACTURE [None]
  - PELVIC FRACTURE [None]
  - RIB FRACTURE [None]
  - OSTEOSCLEROSIS [None]
  - PAIN IN EXTREMITY [None]
  - OSTEOPENIA [None]
  - LUMBAR SPINAL STENOSIS [None]
  - LIGAMENT SPRAIN [None]
